FAERS Safety Report 8907536 (Version 2)
Quarter: 2012Q4

REPORT INFORMATION
  Report Type: 
  Country: JP (occurrence: JP)
  Receive Date: 20121114
  Receipt Date: 20121119
  Transmission Date: 20130627
  Serious: Yes (Hospitalization)
  Sender: FDA-Public Use
  Company Number: JP-PFIZER INC-2012281684

PATIENT
  Age: 76 Year
  Sex: Female

DRUGS (3)
  1. CELECOX [Suspect]
     Indication: KNEE PAIN
     Dosage: UNK
     Route: 048
     Dates: start: 20120812, end: 20120815
  2. CELECOX [Suspect]
     Dosage: UNK
     Route: 048
     Dates: start: 20120913, end: 201209
  3. BAYASPIRIN [Concomitant]

REACTIONS (5)
  - Drug hypersensitivity [Recovered/Resolved]
  - Vomiting [Recovered/Resolved]
  - Rash [Recovered/Resolved]
  - Pyrexia [Recovered/Resolved]
  - Asthenia [Recovered/Resolved]
